FAERS Safety Report 18709772 (Version 1)
Quarter: 2021Q1

REPORT INFORMATION
  Report Type: Spontaneous
  Country: FR (occurrence: FR)
  Receive Date: 20210107
  Receipt Date: 20210107
  Transmission Date: 20210419
  Serious: Yes (Other)
  Sender: FDA-Public Use
  Company Number: FR-SUN PHARMACEUTICAL INDUSTRIES LTD-2020RR-274421

PATIENT
  Age: 65 Year
  Sex: Male

DRUGS (2)
  1. IBUFETUM 5 %, GEL [Suspect]
     Active Substance: IBUPROFEN
     Indication: INJURY
     Dosage: UNK
     Route: 061
     Dates: start: 201905, end: 201905
  2. IBUPROFEN. [Suspect]
     Active Substance: IBUPROFEN
     Indication: INJURY
     Dosage: INCONNUE ()
     Route: 048
     Dates: start: 201905, end: 201905

REACTIONS (2)
  - Drug hypersensitivity [Recovered/Resolved]
  - Photosensitivity reaction [Recovered/Resolved]

NARRATIVE: CASE EVENT DATE: 20190517
